FAERS Safety Report 10161645 (Version 1)
Quarter: 2014Q2

REPORT INFORMATION
  Report Type: Spontaneous
  Country: ES (occurrence: ES)
  Receive Date: 20140509
  Receipt Date: 20140509
  Transmission Date: 20141212
  Serious: Yes (Other)
  Sender: FDA-Public Use
  Company Number: ES-BRISTOL-MYERS SQUIBB COMPANY-20690269

PATIENT
  Age: 63 Year
  Sex: Male

DRUGS (9)
  1. BYDUREON [Suspect]
     Indication: DIABETES MELLITUS
     Route: 058
     Dates: start: 20140110, end: 20140210
  2. ADIRO [Concomitant]
     Dates: start: 2011
  3. ESPIDIFEN [Concomitant]
  4. EUGLUCON [Concomitant]
     Dates: start: 2011
  5. PANTOPRAZOLE SODIUM [Concomitant]
     Dates: start: 201306
  6. SALMETEROL + FLUTICASONE [Concomitant]
     Dates: start: 201103
  7. SPIRIVA [Concomitant]
     Dates: start: 201103
  8. STILNOX [Concomitant]
     Dates: start: 2011
  9. VENTOLIN [Concomitant]
     Dates: start: 201105

REACTIONS (2)
  - Granuloma skin [Recovered/Resolved]
  - Mastitis [Recovered/Resolved]
